FAERS Safety Report 8127137-8 (Version None)
Quarter: 2012Q1

REPORT INFORMATION
  Report Type: 
  Country: None (occurrence: None)
  Receive Date: 20120210
  Receipt Date: 20120131
  Transmission Date: 20120608
  Serious: Yes (Hospitalization, Other)
  Sender: FDA-Public Use
  Company Number: US-ELI_LILLY_AND_COMPANY-US201010006036

PATIENT
  Sex: Female
  Weight: 79.002 kg

DRUGS (9)
  1. FORTEO [Suspect]
     Indication: OSTEOPOROSIS
     Dosage: 20 UG, DAILY (1/D)
     Dates: start: 20101019
  2. PRANDIN [Concomitant]
     Dosage: 2 MG, UNKNOWN
  3. ENALAPRIL MALEATE [Concomitant]
     Dosage: 40 MG, QD
  4. VITAMIN D [Concomitant]
  5. CIPROFLOXACIN [Concomitant]
     Dosage: 500 MG, BID
  6. VITAMIN B-12 [Concomitant]
  7. PREDNISONE TAB [Concomitant]
  8. FORTEO [Suspect]
     Dosage: 20 UG, QD
  9. TIDACT                             /00166002/ [Concomitant]

REACTIONS (7)
  - HOSPITALISATION [None]
  - TACHYCARDIA [None]
  - HYPOTENSION [None]
  - RED BLOOD CELL COUNT DECREASED [None]
  - PLATELET COUNT DECREASED [None]
  - ARTHRITIS [None]
  - NAUSEA [None]
